FAERS Safety Report 9916691 (Version 3)
Quarter: 2014Q1

REPORT INFORMATION
  Report Type: Spontaneous
  Country: US (occurrence: US)
  Receive Date: 20140221
  Receipt Date: 20140313
  Transmission Date: 20141002
  Serious: Yes (Other)
  Sender: FDA-Public Use
  Company Number: US-PFIZER INC-2014050360

PATIENT
  Sex: Female

DRUGS (6)
  1. CELEBREX [Suspect]
     Indication: PAIN IN EXTREMITY
     Dosage: UNK
     Dates: start: 2008
  2. CELEBREX [Suspect]
     Indication: BACK PAIN
     Dosage: UNK
     Dates: start: 2007
  3. CELEBREX [Suspect]
     Dosage: UNK
     Dates: start: 2009
  4. LYRICA [Suspect]
     Dosage: UNK
     Dates: start: 2007
  5. LYRICA [Suspect]
     Dosage: UNK
     Dates: start: 2008
  6. LYRICA [Suspect]
     Dosage: UNK
     Dates: start: 2009

REACTIONS (4)
  - Diabetes mellitus [Unknown]
  - Diabetic neuropathy [Unknown]
  - Type 2 diabetes mellitus [Unknown]
  - Blindness [Unknown]
